FAERS Safety Report 11925120 (Version 2)
Quarter: 2016Q1

REPORT INFORMATION
  Report Type: Report from Study
  Country: BR (occurrence: BR)
  Receive Date: 20160118
  Receipt Date: 20160309
  Transmission Date: 20160526
  Serious: Yes (Death, Hospitalization, Other)
  Sender: FDA-Public Use
  Company Number: BR-BAYER-2016-004303

PATIENT
  Age: 66 Year
  Sex: Male
  Weight: 55 kg

DRUGS (4)
  1. OMEPRAZOLE. [Concomitant]
     Active Substance: OMEPRAZOLE
     Indication: PRODUCT USED FOR UNKNOWN INDICATION
     Dosage: 1 DF, QD
     Route: 048
  2. NEXAVAR [Suspect]
     Active Substance: SORAFENIB
     Indication: WOUND
     Dosage: 800 MG, QD
     Route: 048
     Dates: start: 20151208
  3. DIOVAN [Concomitant]
     Active Substance: VALSARTAN
     Indication: BLOOD PRESSURE MANAGEMENT
     Dosage: 1 DF, QD
     Route: 048
     Dates: start: 2013
  4. SUSTRATE [Concomitant]
     Active Substance: PROPATYL NITRATE
     Indication: BLOOD PRESSURE MANAGEMENT
     Dosage: 1 DF, OM
     Route: 048

REACTIONS (15)
  - Erythema [Not Recovered/Not Resolved]
  - Hypophagia [Not Recovered/Not Resolved]
  - Pruritus generalised [Not Recovered/Not Resolved]
  - Hepatocellular carcinoma [Fatal]
  - Nausea [Not Recovered/Not Resolved]
  - Coma [None]
  - Stomatitis [Not Recovered/Not Resolved]
  - Mouth haemorrhage [Not Recovered/Not Resolved]
  - Dry mouth [Not Recovered/Not Resolved]
  - Skin wound [Not Recovered/Not Resolved]
  - Asthenia [None]
  - Skin toxicity [Not Recovered/Not Resolved]
  - Rash macular [Not Recovered/Not Resolved]
  - Dysphagia [Not Recovered/Not Resolved]
  - Off label use [None]

NARRATIVE: CASE EVENT DATE: 201512
